FAERS Safety Report 23197065 (Version 2)
Quarter: 2023Q4

REPORT INFORMATION
  Report Type: Spontaneous
  Country: US (occurrence: None)
  Receive Date: 20231117
  Receipt Date: 20231122
  Transmission Date: 20240110
  Serious: Yes (Other)
  Sender: FDA-Public Use
  Company Number: 2023A259729

PATIENT
  Sex: Female

DRUGS (3)
  1. TEZSPIRE [Suspect]
     Active Substance: TEZEPELUMAB-EKKO
  2. ENBREL [Suspect]
     Active Substance: ETANERCEPT
  3. VITAMINS [Concomitant]
     Active Substance: VITAMINS

REACTIONS (9)
  - Asthma [Recovering/Resolving]
  - Pneumonitis [Unknown]
  - COVID-19 [Recovering/Resolving]
  - Blood lactic acid increased [Unknown]
  - White blood cell count increased [Unknown]
  - Asthma [Unknown]
  - Product dose omission issue [Unknown]
  - Drug ineffective [Unknown]
  - Inappropriate schedule of product administration [Unknown]
